FAERS Safety Report 14706436 (Version 1)
Quarter: 2018Q2

REPORT INFORMATION
  Report Type: Report from Study
  Country: US (occurrence: US)
  Receive Date: 20180402
  Receipt Date: 20180402
  Transmission Date: 20180711
  Serious: Yes (Other)
  Sender: FDA-Public Use
  Company Number: US-TEVA-2018-US-875935

PATIENT
  Age: 37 Year

DRUGS (1)
  1. COPAXONE [Suspect]
     Active Substance: GLATIRAMER ACETATE
     Indication: MULTIPLE SCLEROSIS
     Route: 058
     Dates: start: 20160922, end: 20171215

REACTIONS (3)
  - Injection site mass [Unknown]
  - Skin indentation [Unknown]
  - Lipodystrophy acquired [Unknown]

NARRATIVE: CASE EVENT DATE: 201706
